FAERS Safety Report 14773844 (Version 1)
Quarter: 2018Q2

REPORT INFORMATION
  Report Type: Report from Study
  Country: IN (occurrence: IN)
  Receive Date: 20180418
  Receipt Date: 20180418
  Transmission Date: 20180711
  Serious: Yes (Death)
  Sender: FDA-Public Use
  Company Number: PHHY2018IN058113

PATIENT
  Age: 61 Year
  Sex: Female

DRUGS (1)
  1. VYMADA [Suspect]
     Active Substance: SACUBITRIL\VALSARTAN
     Indication: CARDIAC FAILURE
     Dosage: 0.5 DF (50 MG), BID
     Route: 048

REACTIONS (4)
  - Wrong technique in product usage process [Unknown]
  - Prescribed underdose [Unknown]
  - Drug prescribing error [Unknown]
  - Death [Fatal]

NARRATIVE: CASE EVENT DATE: 20180408
